FAERS Safety Report 4909691-X (Version None)
Quarter: 2006Q1

REPORT INFORMATION
  Report Type: 
  Country: None (occurrence: None)
  Receive Date: 20060208
  Receipt Date: 20060126
  Transmission Date: 20060701
  Serious: Yes (Other)
  Sender: FDA-Public Use
  Company Number: 200613869

PATIENT
  Age: 40 Year
  Sex: Female

DRUGS (11)
  1. NEURONTIN [Suspect]
     Indication: NERVE INJURY
     Dates: start: 20010101, end: 20050101
  2. LYRICA [Suspect]
     Indication: NERVE INJURY
     Dosage: 200 MG (100 MG, 2 IN 1 D),
     Dates: start: 20060124, end: 20060126
  3. MORPHINE SULFATE [Concomitant]
  4. BELLADONNA AND DERIVATIVES IN COMB WITH ANALG (BELLADONNA AND DERIVATI [Concomitant]
  5. LEVOTHYROXINE SODIUM [Concomitant]
  6. VITAMIN C (VITAMIN C) [Concomitant]
  7. ESTRADIOL [Concomitant]
  8. ALEVE [Concomitant]
  9. XANAX [Concomitant]
  10. LORCET-HD [Concomitant]
  11. FIORINAL [Concomitant]

REACTIONS (7)
  - BREAKTHROUGH PAIN [None]
  - EUPHORIC MOOD [None]
  - FEELING ABNORMAL [None]
  - GAIT DISTURBANCE [None]
  - VERTIGO [None]
  - VISION BLURRED [None]
  - WRONG TECHNIQUE IN DRUG USAGE PROCESS [None]
